FAERS Safety Report 4954084-2 (Version None)
Quarter: 2006Q1

REPORT INFORMATION
  Report Type: 
  Country: None (occurrence: None)
  Receive Date: 20060327
  Receipt Date: 20011217
  Transmission Date: 20060701
  Serious: Yes (Hospitalization)
  Sender: FDA-Public Use
  Company Number: FR-GLAXOSMITHKLINE-B0257636A

PATIENT
  Age: 65 Year
  Sex: Male
  Weight: 102 kg

DRUGS (1)
  1. CLAMOXYL [Suspect]
     Indication: BRAIN ABSCESS
     Dosage: 3G SIX TIMES PER DAY
     Route: 048
     Dates: start: 20011114, end: 20011120

REACTIONS (1)
  - RENAL FAILURE ACUTE [None]
